FAERS Safety Report 5809094-X (Version None)
Quarter: 2008Q3

REPORT INFORMATION
  Report Type: 
  Country: None (occurrence: None)
  Receive Date: 20080714
  Receipt Date: 20080704
  Transmission Date: 20090109
  Serious: Yes (Hospitalization, Other)
  Sender: FDA-Public Use
  Company Number: HU-AVENTIS-200813830GDDC

PATIENT
  Age: 61 Year
  Sex: Male

DRUGS (8)
  1. ARAVA [Suspect]
     Indication: RHEUMATOID ARTHRITIS
     Route: 048
     Dates: start: 20050101, end: 20070101
  2. ARAVA [Suspect]
     Route: 048
     Dates: start: 20070101, end: 20080410
  3. HUMIRA [Concomitant]
     Route: 042
     Dates: start: 20070101
  4. MEDROL [Concomitant]
     Dosage: DOSE: UNK
     Route: 048
     Dates: start: 20050101
  5. NSAID'S [Concomitant]
     Dosage: DOSE: UNK
     Route: 048
  6. OMEPRAZOLE [Concomitant]
     Route: 048
  7. OMEPRAZOLE [Concomitant]
     Indication: GASTRITIS
     Route: 048
  8. NORMODIPINE [Concomitant]
     Dosage: DOSE: UNK
     Route: 048

REACTIONS (2)
  - HEPATITIS TOXIC [None]
  - MALAISE [None]
